FAERS Safety Report 5135578-6 (Version None)
Quarter: 2006Q4

REPORT INFORMATION
  Report Type: 
  Country: None (occurrence: None)
  Receive Date: 20061020
  Receipt Date: 20061009
  Transmission Date: 20070319
  Serious: Yes (Death, Other)
  Sender: FDA-Public Use
  Company Number: 2006030657

PATIENT
  Sex: Female

DRUGS (36)
  1. NEURONTIN [Suspect]
     Indication: BACK PAIN
     Dosage: SEE IMAGE
     Dates: start: 19990707, end: 19990920
  2. NEURONTIN [Suspect]
     Indication: BACK PAIN
     Dosage: SEE IMAGE
     Dates: start: 20020503, end: 20040212
  3. ALPRAZOLAM [Concomitant]
  4. AMITRIPTYLINE HCL [Concomitant]
  5. CARBAMAZEPINE [Concomitant]
  6. CLONIDINE [Concomitant]
  7. CYCLOBENZAPRINE HCL [Concomitant]
  8. DECADRON [Concomitant]
  9. HEXOL (CHLORHEXIDINE, ISOPROPANOL) [Concomitant]
  10. DIAZEPAM [Concomitant]
  11. DICLOFENAC SODIUM [Concomitant]
  12. DILAUDID (HYDROBROMIDE HYDROCHLORIDE) [Concomitant]
  13. DURAGESIC-100 [Concomitant]
  14. OXYCODONE AND ACETAMINOPHEN [Concomitant]
  15. HYDROCODONE [Concomitant]
  16. HYDROXYZINE [Concomitant]
  17. MORPHINE [Concomitant]
  18. LEXAPRO [Concomitant]
  19. MECLIZINE [Concomitant]
  20. METOCLOPRAMIDE [Concomitant]
  21. MIRTAZAPINE [Concomitant]
  22. MOBIC [Concomitant]
  23. ORAMORPH SR [Concomitant]
  24. OXYCODONE HCL [Concomitant]
  25. PAXIL [Concomitant]
  26. PERCOCET (OXYCODONE HYDROCHLORDE, PARACETAMOL) [Concomitant]
  27. PHENAZOPYRIDINE HCL TAB [Concomitant]
  28. PROMETHAZINE [Concomitant]
  29. ALL OTHER THERAPEUTIC PRODUCTS [Concomitant]
  30. SEROQUEL [Concomitant]
  31. ASPIRIN [Concomitant]
  32. TOPAMAX [Concomitant]
  33. TRAMADOL HCL [Concomitant]
  34. TRAZODONE HCL [Concomitant]
  35. TRIMETHOBENZAMIDE [Concomitant]
  36. ULTRACET [Concomitant]

REACTIONS (8)
  - COMPLETED SUICIDE [None]
  - CONDITION AGGRAVATED [None]
  - DETOXIFICATION [None]
  - DRUG INEFFECTIVE [None]
  - GUN SHOT WOUND [None]
  - HEAD INJURY [None]
  - INTENTIONAL SELF-INJURY [None]
  - PAIN [None]
